FAERS Safety Report 5010004-6 (Version None)
Quarter: 2006Q2

REPORT INFORMATION
  Report Type: 
  Country: None (occurrence: None)
  Receive Date: 20060522
  Receipt Date: 20060515
  Transmission Date: 20061013
  Serious: Yes (Hospitalization)
  Sender: FDA-Public Use
  Company Number: E2020-00004-SOL-DE

PATIENT
  Age: 76 Year
  Sex: Female

DRUGS (12)
  1. ARICEPT [Suspect]
     Indication: DEMENTIA
     Dosage: SEE IMAGE
     Route: 048
     Dates: start: 20030101, end: 20050731
  2. ARICEPT [Suspect]
     Indication: DEMENTIA
     Dosage: SEE IMAGE
     Route: 048
     Dates: start: 20050801, end: 20050801
  3. ARICEPT [Suspect]
     Indication: DEMENTIA
     Dosage: SEE IMAGE
     Route: 048
     Dates: start: 20050802, end: 20050817
  4. ARICEPT [Suspect]
     Indication: DEMENTIA
     Dosage: SEE IMAGE
     Route: 048
     Dates: start: 20050818, end: 20050913
  5. FLUANXOL DEPOT             (FLUPENTIXOL DECANOATE) [Suspect]
     Indication: DEMENTIA
     Dosage: 20 MG, 1 IN 1 D, INTRAMUSCULAR
     Route: 030
     Dates: start: 20030101, end: 20050720
  6. ABILIFY [Suspect]
     Dosage: SEE IMAGE
     Route: 048
     Dates: start: 20050730, end: 20050802
  7. ABILIFY [Suspect]
     Dosage: SEE IMAGE
     Route: 048
     Dates: start: 20050803, end: 20050803
  8. ABILIFY [Suspect]
     Dosage: SEE IMAGE
     Route: 048
     Dates: start: 20050804, end: 20050809
  9. EUNERPAN              (MELPEREONE HYDROCHLORIDE) [Suspect]
     Dosage: SEE IMAGE
     Route: 048
     Dates: start: 20050731, end: 20050731
  10. EUNERPAN              (MELPEREONE HYDROCHLORIDE) [Suspect]
     Dosage: SEE IMAGE
     Route: 048
     Dates: start: 20050801, end: 20050807
  11. DIPIPERON              (PIPAMPERONE) [Concomitant]
  12. SEROQUEL [Concomitant]

REACTIONS (4)
  - CHOLELITHIASIS [None]
  - FLUID INTAKE REDUCED [None]
  - ORAL INTAKE REDUCED [None]
  - PARKINSONISM [None]
